FAERS Safety Report 6028192-1 (Version None)
Quarter: 2009Q1

REPORT INFORMATION
  Report Type: 
  Country: None (occurrence: None)
  Receive Date: 20090106
  Receipt Date: 20090102
  Transmission Date: 20090719
  Serious: Yes (Other)
  Sender: FDA-Public Use
  Company Number: GB-BRISTOL-MYERS SQUIBB COMPANY-14459507

PATIENT
  Age: 7 Year
  Sex: Male

DRUGS (6)
  1. IFOSFAMIDE [Suspect]
     Indication: RHABDOMYOSARCOMA
  2. ETOPOSIDE [Suspect]
     Indication: RHABDOMYOSARCOMA
  3. DACTINOMYCIN [Suspect]
     Indication: RHABDOMYOSARCOMA
     Route: 042
  4. EPIRUBICIN HCL [Suspect]
     Indication: RHABDOMYOSARCOMA
  5. CARBOPLATIN [Concomitant]
     Indication: RHABDOMYOSARCOMA
  6. VINCRISTINE SULFATE [Concomitant]
     Indication: RHABDOMYOSARCOMA

REACTIONS (2)
  - METASTASES TO LYMPH NODES [None]
  - THYROID CANCER [None]
